FAERS Safety Report 19473002 (Version 7)
Quarter: 2021Q4

REPORT INFORMATION
  Report Type: Report from Study
  Country: FR (occurrence: FR)
  Receive Date: 20210629
  Receipt Date: 20211006
  Transmission Date: 20220303
  Serious: Yes (Hospitalization)
  Sender: FDA-Public Use
  Company Number: FR-EISAI MEDICAL RESEARCH-EC-2021-095264

PATIENT
  Age: 67 Year
  Sex: Male
  Weight: 61 kg

DRUGS (16)
  1. LENVATINIB [Suspect]
     Active Substance: LENVATINIB
     Indication: Transitional cell carcinoma
     Route: 048
     Dates: start: 20210324, end: 20210602
  2. LENVATINIB [Suspect]
     Active Substance: LENVATINIB
     Indication: Metastatic neoplasm
     Dosage: STARTING DOSE 20 MILLIGRAM, FLUCTUATED DOSAGE
     Route: 048
     Dates: start: 20210618, end: 20210805
  3. LENVATINIB [Suspect]
     Active Substance: LENVATINIB
     Route: 048
     Dates: start: 20210806, end: 20210827
  4. PEMBROLIZUMAB [Suspect]
     Active Substance: PEMBROLIZUMAB
     Indication: Metastatic neoplasm
     Route: 042
     Dates: start: 20210324, end: 20210324
  5. PEMBROLIZUMAB [Suspect]
     Active Substance: PEMBROLIZUMAB
     Indication: Transitional cell carcinoma
     Route: 042
     Dates: start: 20210416, end: 20210507
  6. PEMBROLIZUMAB [Suspect]
     Active Substance: PEMBROLIZUMAB
     Route: 042
     Dates: start: 20210528, end: 20210528
  7. PEMBROLIZUMAB [Suspect]
     Active Substance: PEMBROLIZUMAB
     Route: 042
     Dates: start: 20210618, end: 20210715
  8. PEMBROLIZUMAB [Suspect]
     Active Substance: PEMBROLIZUMAB
     Route: 042
     Dates: start: 20210806
  9. LEVOTHYROXINE [Concomitant]
     Active Substance: LEVOTHYROXINE
     Dates: start: 201707
  10. TRAMADOL HYDROCHLORIDE [Concomitant]
     Active Substance: TRAMADOL HYDROCHLORIDE
     Dates: start: 20210307, end: 20210315
  11. ACETAMINOPHEN [Concomitant]
     Active Substance: ACETAMINOPHEN
     Dates: start: 20210307
  12. GLYCERIN\MINERAL OIL\PETROLATUM [Concomitant]
     Active Substance: GLYCERIN\MINERAL OIL\PETROLATUM
     Dates: start: 20210324, end: 20210602
  13. SODIUM BICARBONATE [Concomitant]
     Active Substance: SODIUM BICARBONATE
     Dates: start: 20210324, end: 20210602
  14. OFLOXACIN [Concomitant]
     Active Substance: OFLOXACIN
     Dates: start: 202103, end: 202103
  15. CYAMEMAZINE [Concomitant]
     Active Substance: CYAMEMAZINE
  16. LYRICA [Concomitant]
     Active Substance: PREGABALIN
     Dates: start: 202008

REACTIONS (2)
  - Decreased appetite [Recovered/Resolved]
  - Acute kidney injury [Recovered/Resolved]

NARRATIVE: CASE EVENT DATE: 20210325
